FAERS Safety Report 12195902 (Version 1)
Quarter: 2016Q1

REPORT INFORMATION
  Report Type: Spontaneous
  Country: US (occurrence: US)
  Receive Date: 20160321
  Receipt Date: 20160321
  Transmission Date: 20160526
  Serious: Yes (Life-Threatening, Hospitalization, Other)
  Sender: FDA-Public Use
  Company Number: US-EDGEMONT-2016EDG00009

PATIENT
  Age: 16 Year
  Sex: Female

DRUGS (1)
  1. BUPROPION. [Suspect]
     Active Substance: BUPROPION
     Dosage: 60-150 MG TABLETS, ONCE
     Route: 048

REACTIONS (8)
  - Toxicity to various agents [Unknown]
  - Status epilepticus [Recovered/Resolved]
  - Overdose [Recovered/Resolved]
  - Pulseless electrical activity [Recovered/Resolved]
  - Compartment syndrome [Unknown]
  - Cardiogenic shock [Recovered/Resolved]
  - Electrocardiogram QRS complex prolonged [Recovered/Resolved]
  - Cardiomyopathy [Recovered/Resolved]
